FAERS Safety Report 9024279 (Version 2)
Quarter: 2013Q1

REPORT INFORMATION
  Report Type: Spontaneous
  Country: SV (occurrence: SV)
  Receive Date: 20130121
  Receipt Date: 20130211
  Transmission Date: 20140127
  Serious: Yes (Death)
  Sender: FDA-Public Use
  Company Number: PHHY2013SV005081

PATIENT
  Age: 86 None
  Sex: Female

DRUGS (2)
  1. GLIVEC [Suspect]
     Indication: CHRONIC MYELOID LEUKAEMIA
     Dosage: 400 MG, Q24H
     Dates: start: 2003
  2. ENALAPRIL [Concomitant]
     Dosage: 20 MG, Q12H

REACTIONS (1)
  - Cardiovascular disorder [Fatal]
